FAERS Safety Report 22530799 (Version 1)
Quarter: 2023Q2

REPORT INFORMATION
  Report Type: Spontaneous
  Country: AR (occurrence: AR)
  Receive Date: 20230607
  Receipt Date: 20230607
  Transmission Date: 20230721
  Serious: Yes (Death)
  Sender: FDA-Public Use
  Company Number: AR-PFIZER INC-PV202300099799

PATIENT
  Age: 62 Year
  Sex: Female

DRUGS (1)
  1. TALZENNA [Suspect]
     Active Substance: TALAZOPARIB TOSYLATE
     Indication: Breast cancer female
     Dosage: 0.5 MG, 1X/DAY
     Dates: start: 20220721

REACTIONS (1)
  - Death [Fatal]

NARRATIVE: CASE EVENT DATE: 20230604
